FAERS Safety Report 7915089-2 (Version None)
Quarter: 2011Q4

REPORT INFORMATION
  Report Type: 
  Country: None (occurrence: None)
  Receive Date: 20111115
  Receipt Date: 20111110
  Transmission Date: 20120403
  Serious: Yes (Hospitalization)
  Sender: FDA-Public Use
  Company Number: AU-MERCK-1111USA01535

PATIENT
  Age: 75 Year
  Sex: Male

DRUGS (8)
  1. BUPRENORPHINE [Concomitant]
     Route: 065
  2. ZOCOR [Suspect]
     Route: 048
  3. DIGOXIN [Concomitant]
     Route: 065
  4. COLOXYL WITH SENNA [Concomitant]
     Route: 065
  5. PLAVIX [Concomitant]
     Route: 065
  6. OXYCONTIN [Concomitant]
     Route: 065
  7. CYCLOSPORINE [Suspect]
     Route: 065
  8. METFORMIN HYDROCHLORIDE [Concomitant]
     Route: 065

REACTIONS (3)
  - BLOOD CREATINE PHOSPHOKINASE INCREASED [None]
  - RENAL DISORDER [None]
  - MYALGIA [None]
